FAERS Safety Report 26183681 (Version 2)
Quarter: 2025Q4

REPORT INFORMATION
  Report Type: Report from Study
  Country: US (occurrence: US)
  Receive Date: 20251221
  Receipt Date: 20251224
  Transmission Date: 20260118
  Serious: Yes (Hospitalization)
  Sender: ABBVIE
  Company Number: US-ABBVIE-6592766

PATIENT
  Age: 46 Year
  Sex: Female
  Weight: 66.67 kg

DRUGS (1)
  1. RINVOQ [Suspect]
     Active Substance: UPADACITINIB
     Indication: Connective tissue disorder
     Dosage: FORM STRENGTH - 15 MILLIGRAM, LAST ADMIN-2025
     Route: 048
     Dates: start: 20250324

REACTIONS (11)
  - Eye disorder [Recovering/Resolving]
  - Pyrexia [Recovered/Resolved]
  - Antinuclear antibody positive [Recovering/Resolving]
  - Product storage error [Unknown]
  - Cough [Recovered/Resolved]
  - Movement disorder [Recovering/Resolving]
  - Myalgia [Recovered/Resolved]
  - Lung disorder [Recovering/Resolving]
  - Headache [Recovered/Resolved]
  - Pain [Recovering/Resolving]
  - Product use in unapproved indication [Unknown]

NARRATIVE: CASE EVENT DATE: 20250101
